FAERS Safety Report 7620103-8 (Version None)
Quarter: 2011Q3

REPORT INFORMATION
  Report Type: 
  Country: None (occurrence: None)
  Receive Date: 20110719
  Receipt Date: 20110712
  Transmission Date: 20111222
  Serious: Yes (Death, Hospitalization)
  Sender: FDA-Public Use
  Company Number: US-SANOFI-AVENTIS-2011SA045133

PATIENT
  Age: 83 Year
  Sex: Female

DRUGS (3)
  1. ASPIRIN [Concomitant]
     Dates: end: 20110601
  2. LOVENOX [Suspect]
     Route: 065
     Dates: start: 20110501, end: 20110601
  3. COUMADIN [Concomitant]
     Dates: end: 20110601

REACTIONS (3)
  - HYPOVOLAEMIC SHOCK [None]
  - OEDEMA PERIPHERAL [None]
  - CONTUSION [None]
